FAERS Safety Report 6382267-6 (Version None)
Quarter: 2009Q3

REPORT INFORMATION
  Report Type: 
  Country: None (occurrence: None)
  Receive Date: 20090928
  Receipt Date: 20090928
  Transmission Date: 20100115
  Serious: Yes (Disabling, Other)
  Sender: FDA-Public Use
  Company Number: None

PATIENT
  Age: 52 Year
  Sex: Male

DRUGS (1)
  1. FOSAMAX [Suspect]
     Indication: BONE DISORDER
     Dosage: QD PO
     Route: 048
     Dates: start: 20030901, end: 20050901

REACTIONS (4)
  - BONE DISORDER [None]
  - SPEECH DISORDER [None]
  - TONGUE INJURY [None]
  - TOOTH FRACTURE [None]
